FAERS Safety Report 9986943 (Version 2)
Quarter: 2014Q2

REPORT INFORMATION
  Report Type: Spontaneous
  Country: US (occurrence: US)
  Receive Date: 20140307
  Receipt Date: 20140401
  Transmission Date: 20141212
  Serious: Yes (Death, Other)
  Sender: FDA-Public Use
  Company Number: US-ELI_LILLY_AND_COMPANY-US201403001885

PATIENT
  Age: 95 Year
  Sex: Female
  Weight: 45.35 kg

DRUGS (5)
  1. FORTEO [Suspect]
     Indication: OSTEOPOROSIS
     Dosage: 20 UG, QD
     Route: 065
  2. ROCEPHIN [Concomitant]
  3. VITAMIN D [Concomitant]
     Dosage: UNK
  4. TYLENOL                                 /SCH/ [Concomitant]
     Dosage: UNK
  5. AVENTYL [Concomitant]

REACTIONS (3)
  - Cardio-respiratory arrest [Fatal]
  - Cardiac failure [Fatal]
  - Respiratory distress [Unknown]
